FAERS Safety Report 11745206 (Version 2)
Quarter: 2016Q2

REPORT INFORMATION
  Report Type: Report from Study
  Country: CA (occurrence: CA)
  Receive Date: 20151117
  Receipt Date: 20160516
  Transmission Date: 20160815
  Serious: Yes (Other)
  Sender: FDA-Public Use
  Company Number: CA-ROCHE-1612534

PATIENT
  Age: 81 Year
  Sex: Male

DRUGS (9)
  1. METFORMIN [Concomitant]
     Active Substance: METFORMIN HYDROCHLORIDE
  2. AMLOPINE [Concomitant]
  3. ATENOL [Concomitant]
     Active Substance: ATENOLOL
  4. ERIVEDGE [Suspect]
     Active Substance: VISMODEGIB
     Indication: BASAL CELL CARCINOMA
     Route: 048
     Dates: start: 201409
  5. PANTOPRAZOLE [Concomitant]
     Active Substance: PANTOPRAZOLE SODIUM
  6. ELIQUIS [Concomitant]
     Active Substance: APIXABAN
  7. MYLAN-NITRO [Concomitant]
  8. ATORVASTIN [Concomitant]
     Active Substance: ATORVASTATIN
  9. RAMIPRIL. [Concomitant]
     Active Substance: RAMIPRIL

REACTIONS (4)
  - Muscle spasms [Recovered/Resolved]
  - Ageusia [Recovering/Resolving]
  - Skin lesion [Not Recovered/Not Resolved]
  - Renal disorder [Unknown]

NARRATIVE: CASE EVENT DATE: 201506
